FAERS Safety Report 13902641 (Version 6)
Quarter: 2017Q4

REPORT INFORMATION
  Report Type: Report from Study
  Country: US (occurrence: US)
  Receive Date: 20170824
  Receipt Date: 20171025
  Transmission Date: 20180320
  Serious: Yes (Hospitalization, Other)
  Sender: FDA-Public Use
  Company Number: US-AMGEN-USASL2017125045

PATIENT
  Age: 64 Year
  Sex: Female

DRUGS (3)
  1. DAPSONE. [Suspect]
     Active Substance: DAPSONE
     Indication: UPPER RESPIRATORY TRACT INFECTION
     Dosage: UNK
     Route: 065
     Dates: start: 2017
  2. ENBREL [Suspect]
     Active Substance: ETANERCEPT
     Indication: RHEUMATOID ARTHRITIS
     Dosage: 50 MG, QWK
     Route: 058
     Dates: start: 20170707
  3. DAPSONE. [Suspect]
     Active Substance: DAPSONE
     Indication: INFECTION SUSCEPTIBILITY INCREASED

REACTIONS (15)
  - Cardiac failure [Unknown]
  - Hypersensitivity [Unknown]
  - Pain [Unknown]
  - Injection site induration [Recovered/Resolved]
  - Drug effect incomplete [Unknown]
  - Infection susceptibility increased [Unknown]
  - Fatigue [Unknown]
  - Pyrexia [Recovered/Resolved]
  - Upper respiratory tract infection [Unknown]
  - Injection site erythema [Recovering/Resolving]
  - Oral fungal infection [Unknown]
  - Lung infection [Unknown]
  - White blood cell count decreased [Unknown]
  - Malaise [Not Recovered/Not Resolved]
  - Injection site bruising [Unknown]

NARRATIVE: CASE EVENT DATE: 2017
